FAERS Safety Report 5924000-5 (Version None)
Quarter: 2008Q4

REPORT INFORMATION
  Report Type: 
  Country: None (occurrence: None)
  Receive Date: 20081020
  Receipt Date: 20081010
  Transmission Date: 20090506
  Serious: Yes (Other)
  Sender: FDA-Public Use
  Company Number: PHHY2008TR24290

PATIENT
  Age: 55 Year
  Sex: Female

DRUGS (2)
  1. LESCOL XL [Suspect]
     Indication: LOW DENSITY LIPOPROTEIN INCREASED
     Dosage: UNK
     Route: 048
     Dates: start: 20081007
  2. PROPYCIL [Concomitant]

REACTIONS (4)
  - ARTHRALGIA [None]
  - FORMICATION [None]
  - LOSS OF CONSCIOUSNESS [None]
  - VOMITING [None]
